FAERS Safety Report 18468581 (Version 1)
Quarter: 2020Q4

REPORT INFORMATION
  Report Type: Spontaneous
  Country: DE (occurrence: DE)
  Receive Date: 20201105
  Receipt Date: 20201105
  Transmission Date: 20210114
  Serious: Yes (Hospitalization, Other)
  Sender: FDA-Public Use
  Company Number: DE-PFIZER INC-2020428408

PATIENT
  Sex: Female

DRUGS (6)
  1. INTUNIV [Suspect]
     Active Substance: GUANFACINE HYDROCHLORIDE
     Dosage: UNK
  2. TORASEMIDE [Suspect]
     Active Substance: TORSEMIDE
     Indication: SUICIDAL IDEATION
     Dosage: UNK
     Route: 048
  3. RAMIPRIL. [Suspect]
     Active Substance: RAMIPRIL
     Indication: SUICIDAL IDEATION
     Dosage: UNK
     Route: 048
  4. LEVOTHYROXINE. [Suspect]
     Active Substance: LEVOTHYROXINE
     Indication: SUICIDAL IDEATION
     Dosage: UNK
     Route: 048
  5. ATORVASTATIN CALCIUM. [Suspect]
     Active Substance: ATORVASTATIN CALCIUM
     Indication: SUICIDAL IDEATION
     Dosage: UNK
     Route: 048
  6. ZONISAMIDE. [Suspect]
     Active Substance: ZONISAMIDE
     Indication: SUICIDAL IDEATION
     Dosage: UNK
     Route: 048

REACTIONS (11)
  - Hypothermia [Unknown]
  - Depressed level of consciousness [Unknown]
  - Intentional overdose [Unknown]
  - Arrhythmia [Unknown]
  - Hypotension [Unknown]
  - Vomiting [Unknown]
  - Nausea [Unknown]
  - Suicidal ideation [Unknown]
  - General physical health deterioration [Unknown]
  - Lactic acidosis [Unknown]
  - Toxicity to various agents [Unknown]
